FAERS Safety Report 12660258 (Version 1)
Quarter: 2016Q3

REPORT INFORMATION
  Report Type: Spontaneous
  Country: None (occurrence: GB)
  Receive Date: 20160817
  Receipt Date: 20160817
  Transmission Date: 20161109
  Serious: Yes (Other)
  Sender: FDA-Public Use
  Company Number: GB-MEDAC PHARMA, INC.-1056422

PATIENT
  Age: 76 Year
  Sex: Female

DRUGS (2)
  1. METOJECT PEN [Suspect]
     Active Substance: METHOTREXATE
     Indication: PSORIATIC ARTHROPATHY
  2. INFLIXIMAB [Concomitant]
     Active Substance: INFLIXIMAB

REACTIONS (3)
  - Abdominal discomfort [Unknown]
  - Cardiac operation [Unknown]
  - Malaise [Unknown]
